FAERS Safety Report 6332218-5 (Version None)
Quarter: 2009Q3

REPORT INFORMATION
  Report Type: 
  Country: None (occurrence: None)
  Receive Date: 20090828
  Receipt Date: 20070802
  Transmission Date: 20100115
  Serious: Yes (Hospitalization, Other)
  Sender: FDA-Public Use
  Company Number: US-ASTRAZENECA-2006UW22019

PATIENT
  Age: 490 Month
  Sex: Male

DRUGS (11)
  1. SEROQUEL [Suspect]
     Indication: DEPRESSION
     Dosage: 25 MG, 100 MG
     Route: 048
     Dates: start: 20011214, end: 20050329
  2. SEROQUEL [Suspect]
     Dosage: 25-175 MG
     Route: 048
     Dates: start: 20011214
  3. DEPO-TESTOSTERONE [Concomitant]
     Dosage: 200 M
     Route: 030
     Dates: start: 20011210
  4. SYNTHROID [Concomitant]
     Indication: HYPOTHYROIDISM
     Dosage: 0.15-200 MCG
     Dates: start: 20040810
  5. LOVASTATIN [Concomitant]
     Route: 048
     Dates: start: 20040810
  6. LIPITOR [Concomitant]
     Dates: start: 20051017
  7. ATENOL [Concomitant]
     Dates: start: 20051017
  8. ACCUPRIL [Concomitant]
     Indication: BLOOD PRESSURE INCREASED
     Dates: start: 20011203
  9. NEXIUM [Concomitant]
     Route: 048
     Dates: start: 20011226
  10. NORVASC [Concomitant]
     Dates: start: 20011226
  11. HYOSCYAMINE [Concomitant]
     Dates: start: 20011226

REACTIONS (7)
  - DIABETES MELLITUS [None]
  - DIABETIC NEPHROPATHY [None]
  - DIABETIC NEUROPATHY [None]
  - EXCORIATION [None]
  - METABOLIC SYNDROME [None]
  - RIB FRACTURE [None]
  - TYPE 2 DIABETES MELLITUS [None]
